FAERS Safety Report 5920082-5 (Version None)
Quarter: 2008Q4

REPORT INFORMATION
  Report Type: 
  Country: None (occurrence: None)
  Receive Date: 20081014
  Receipt Date: 20080930
  Transmission Date: 20090506
  Serious: Yes (Hospitalization, Other)
  Sender: FDA-Public Use
  Company Number: 53029

PATIENT
  Age: 32 Year
  Sex: Female

DRUGS (1)
  1. ENALPRILAT INJ. 1.25MG/1ML [Suspect]
     Indication: HYPERTENSION
     Dosage: 1.25MG

REACTIONS (3)
  - BLOOD PRESSURE DIASTOLIC INCREASED [None]
  - DRUG INEFFECTIVE [None]
  - PAROTITIS [None]
